FAERS Safety Report 6572069-X (Version None)
Quarter: 2010Q1

REPORT INFORMATION
  Report Type: 
  Country: None (occurrence: None)
  Receive Date: 20100201
  Receipt Date: 20100119
  Transmission Date: 20100710
  Serious: Yes (Hospitalization, Other)
  Sender: FDA-Public Use
  Company Number: 005087

PATIENT
  Sex: Female

DRUGS (7)
  1. KEPPRA [Suspect]
     Indication: EPILEPSY
     Dosage: (1500 MG BID ORAL)
     Route: 048
     Dates: start: 20061001
  2. ASPIRIN [Concomitant]
  3. FOLIC ACID [Concomitant]
  4. VITMAIN D NOS [Concomitant]
  5. PRENATAL /02195401/ [Concomitant]
  6. CALCIUM [Concomitant]
  7. VITAMIN K TAB [Concomitant]

REACTIONS (2)
  - ABORTION SPONTANEOUS [None]
  - DRUG EXPOSURE DURING PREGNANCY [None]
